FAERS Safety Report 23529735 (Version 1)
Quarter: 2024Q1

REPORT INFORMATION
  Report Type: Spontaneous
  Country: US (occurrence: US)
  Receive Date: 20240216
  Receipt Date: 20240216
  Transmission Date: 20240410
  Serious: No
  Sender: FDA-Public Use
  Company Number: US-SA-SAC20240213001447

PATIENT
  Age: 59 Year
  Sex: Female

DRUGS (22)
  1. REZUROCK [Suspect]
     Active Substance: BELUMOSUDIL
     Indication: Chronic graft versus host disease
     Dosage: 200 MG, BID
     Route: 048
  2. OMEPRAZOLE [Concomitant]
     Active Substance: OMEPRAZOLE
     Dosage: UNK
  3. ACYCLOVIR [Concomitant]
     Active Substance: ACYCLOVIR
     Dosage: UNK
  4. CYCLOBENZAPRINE [Concomitant]
     Active Substance: CYCLOBENZAPRINE
     Dosage: UNK
  5. DESONIDE [Concomitant]
     Active Substance: DESONIDE
     Dosage: UNK
  6. ESTRADIOL [Concomitant]
     Active Substance: ESTRADIOL
     Dosage: UNK
  7. EZETIMIBE [Concomitant]
     Active Substance: EZETIMIBE
     Dosage: UNK
  8. HYDROXYZINE [Concomitant]
     Active Substance: HYDROXYZINE HYDROCHLORIDE
     Dosage: UNK
  9. XIIDRA [Concomitant]
     Active Substance: LIFITEGRAST
     Dosage: UNK
  10. METOPROLOL [Concomitant]
     Active Substance: METOPROLOL
     Dosage: UNK
  11. NYSTATIN [Concomitant]
     Active Substance: NYSTATIN
     Dosage: UNK
  12. PREDNISONE [Concomitant]
     Active Substance: PREDNISONE
     Dosage: UNK
  13. PREGABALIN [Concomitant]
     Active Substance: PREGABALIN
     Dosage: UNK
  14. XARELTO [Concomitant]
     Active Substance: RIVAROXABAN
     Dosage: UNK
  15. BISEPTOL [SULFAMETHOXAZOLE;TRIMETHOPRIM] [Concomitant]
     Dosage: UNK
  16. SULFAMETHOXAZOLE\TRIMETHOPRIM [Concomitant]
     Active Substance: SULFAMETHOXAZOLE\TRIMETHOPRIM
     Dosage: UNK
  17. ARTIFICIAL TEARS (POLYVINYL ALCOHOL) [Concomitant]
     Active Substance: POLYVINYL ALCOHOL
     Dosage: UNK
  18. TRAMADOL [Concomitant]
     Active Substance: TRAMADOL\TRAMADOL HYDROCHLORIDE
     Dosage: UNK
  19. ZOLPIDEM [Concomitant]
     Active Substance: ZOLPIDEM TARTRATE
     Dosage: UNK
  20. VITAMINS NOS [Concomitant]
     Active Substance: VITAMINS
     Dosage: UNK
  21. HERBALS\TURMERIC [Concomitant]
     Active Substance: HERBALS\TURMERIC
     Dosage: UNK
  22. TEA TREE OIL [Concomitant]
     Active Substance: TEA TREE OIL
     Dosage: UNK

REACTIONS (2)
  - Pain [Unknown]
  - Gastrooesophageal reflux disease [Unknown]
